FAERS Safety Report 4822157-0 (Version None)
Quarter: 2005Q4

REPORT INFORMATION
  Report Type: 
  Country: None (occurrence: None)
  Receive Date: 20051103
  Receipt Date: 20051018
  Transmission Date: 20060501
  Serious: Yes (Hospitalization, Other)
  Sender: FDA-Public Use
  Company Number: US_000745356

PATIENT
  Age: 23 Year
  Sex: Female
  Weight: 68 kg

DRUGS (5)
  1. HUMULIN R [Suspect]
     Indication: DIABETES MELLITUS
     Dosage: 20 U
  2. HUMULIN N [Suspect]
     Indication: DIABETES MELLITUS
  3. HUMULIN L [Suspect]
     Indication: DIABETES MELLITUS
  4. HUMULIN R [Suspect]
  5. INSULIN [Suspect]
     Indication: DIABETES MELLITUS
     Dates: start: 19600101

REACTIONS (9)
  - BLOOD GLUCOSE FLUCTUATION [None]
  - CLAVICLE FRACTURE [None]
  - DEPRESSED LEVEL OF CONSCIOUSNESS [None]
  - DRUG HYPERSENSITIVITY [None]
  - EYE SWELLING [None]
  - HEART RATE INCREASED [None]
  - PAIN [None]
  - PALPITATIONS [None]
  - ROAD TRAFFIC ACCIDENT [None]
